FAERS Safety Report 8954851 (Version 1)
Quarter: 2012Q4

REPORT INFORMATION
  Report Type: 
  Country: US (occurrence: US)
  Receive Date: 20121207
  Receipt Date: 20121207
  Transmission Date: 20130627
  Serious: Yes (Other)
  Sender: FDA-Public Use
  Company Number: PHHY2012US112677

PATIENT
  Age: 25 Year
  Sex: Male

DRUGS (1)
  1. AMITRIPTYLINE [Suspect]

REACTIONS (3)
  - Toxicity to various agents [Unknown]
  - Unresponsive to stimuli [Unknown]
  - Convulsion [Unknown]
